FAERS Safety Report 6267821-4 (Version None)
Quarter: 2009Q3

REPORT INFORMATION
  Report Type: 
  Country: None (occurrence: None)
  Receive Date: 20090714
  Receipt Date: 20090604
  Transmission Date: 20100115
  Serious: No
  Sender: FDA-Public Use
  Company Number: US-BAYER-200911756BCC

PATIENT
  Age: 43 Year
  Sex: Female
  Weight: 75 kg

DRUGS (3)
  1. ALEVE (CAPLET) [Suspect]
     Indication: HEADACHE
     Dosage: TOTAL DAILY DOSE: 440 MG  UNIT DOSE: 220 MG
     Route: 048
     Dates: start: 20090521
  2. INSULIN PEN [Concomitant]
     Route: 065
  3. SINGULAIR [Concomitant]
     Route: 065

REACTIONS (3)
  - COUGH [None]
  - SNEEZING [None]
  - WHEEZING [None]
